FAERS Safety Report 5649997-2 (Version None)
Quarter: 2008Q1

REPORT INFORMATION
  Report Type: 
  Country: None (occurrence: None)
  Receive Date: 20080303
  Receipt Date: 20080222
  Transmission Date: 20080703
  Serious: Yes (Death, Hospitalization)
  Sender: FDA-Public Use
  Company Number: L08-USA-00315-66

PATIENT
  Age: 36 Year
  Sex: Female

DRUGS (6)
  1. DILTIAZEM [Suspect]
  2. QUETIAPINE FUMARATE [Suspect]
  3. METHOTREXATE [Suspect]
  4. DIURETIC [Concomitant]
  5. OPIOIDS/OPIOID ANTAGONIST [Concomitant]
  6. MARIJUANA [Concomitant]

REACTIONS (2)
  - COMPLETED SUICIDE [None]
  - MULTIPLE DRUG OVERDOSE [None]
